FAERS Safety Report 11073683 (Version 2)
Quarter: 2015Q2

REPORT INFORMATION
  Report Type: Spontaneous
  Country: AT (occurrence: AT)
  Receive Date: 20150428
  Receipt Date: 20150430
  Transmission Date: 20150821
  Serious: Yes (Life-Threatening, Hospitalization, Other)
  Sender: FDA-Public Use
  Company Number: CHPA2015AT005451

PATIENT
  Age: 79 Year
  Sex: Male

DRUGS (3)
  1. IBUPROFEN. [Suspect]
     Active Substance: IBUPROFEN
     Indication: PAIN
     Dosage: 400 MG, BID
     Route: 065
     Dates: start: 20121001
  2. TICAGRELOR [Concomitant]
     Active Substance: TICAGRELOR
     Indication: ANTIPLATELET THERAPY
     Dosage: UNK
     Route: 065
  3. ACETYLSALICYLIC ACID [Suspect]
     Active Substance: ASPIRIN
     Indication: ANTIPLATELET THERAPY
     Dosage: UNK
     Route: 065
     Dates: start: 2011

REACTIONS (4)
  - Drug interaction [Unknown]
  - Chest pain [Recovered/Resolved]
  - Acute myocardial infarction [Recovered/Resolved]
  - Cardiogenic shock [Recovered/Resolved]

NARRATIVE: CASE EVENT DATE: 20121011
